FAERS Safety Report 7606056-7 (Version None)
Quarter: 2011Q3

REPORT INFORMATION
  Report Type: 
  Country: None (occurrence: None)
  Receive Date: 20110713
  Receipt Date: 20110705
  Transmission Date: 20111222
  Serious: Yes (Hospitalization, Other)
  Sender: FDA-Public Use
  Company Number: US-ELI_LILLY_AND_COMPANY-US201107001885

PATIENT
  Age: 56 Year
  Sex: Male

DRUGS (9)
  1. RISPERDAL [Concomitant]
  2. HUMULIN N [Suspect]
     Dosage: 34 U, EACH EVENING
     Dates: start: 20000101
  3. PAXIL [Concomitant]
  4. HUMULIN N [Suspect]
     Indication: DIABETES MELLITUS
     Dosage: 33 U, EACH MORNING
     Dates: start: 20000101
  5. ANTIHYPERTENSIVES [Concomitant]
     Dosage: UNK
  6. ZYPREXA [Suspect]
     Indication: PSYCHOPATHIC PERSONALITY
     Dosage: UNK
     Dates: start: 20060101
  7. METFORMIN HCL [Concomitant]
     Dosage: UNK
  8. HALDOL [Concomitant]
  9. HUMALOG [Suspect]
     Indication: BLOOD GLUCOSE INCREASED
     Dosage: 6 U, EACH EVENING
     Dates: start: 20090101

REACTIONS (13)
  - DIABETIC COMA [None]
  - FEELING ABNORMAL [None]
  - BLOOD GLUCOSE INCREASED [None]
  - DELUSION [None]
  - INCORRECT DOSE ADMINISTERED [None]
  - TENDONITIS [None]
  - HYPOGLYCAEMIC UNCONSCIOUSNESS [None]
  - PANCREATIC DISORDER [None]
  - BLOOD GLUCOSE DECREASED [None]
  - TREMOR [None]
  - BLADDER NEOPLASM [None]
  - HOSPITALISATION [None]
  - UNDERDOSE [None]
